FAERS Safety Report 8586170-2 (Version None)
Quarter: 2012Q3

REPORT INFORMATION
  Report Type: 
  Country: None (occurrence: None)
  Receive Date: 20120810
  Receipt Date: 20120806
  Transmission Date: 20120928
  Serious: Yes (Hospitalization)
  Sender: FDA-Public Use
  Company Number: IT-GLAXOSMITHKLINE-B0792179A

PATIENT
  Sex: Male

DRUGS (2)
  1. KEPPRA [Suspect]
     Indication: GENERALISED NON-CONVULSIVE EPILEPSY
     Dosage: 500MG PER DAY
     Route: 048
     Dates: start: 20120309, end: 20120311
  2. LAMICTAL [Suspect]
     Indication: GENERALISED NON-CONVULSIVE EPILEPSY
     Dosage: 50MG TWICE PER DAY
     Route: 048
     Dates: start: 20120102, end: 20120311

REACTIONS (5)
  - COAGULOPATHY [None]
  - RASH [None]
  - TRANSAMINASES INCREASED [None]
  - ANGIOEDEMA [None]
  - CYTOLYTIC HEPATITIS [None]
